FAERS Safety Report 5288981-8 (Version None)
Quarter: 2007Q2

REPORT INFORMATION
  Report Type: 
  Country: None (occurrence: None)
  Receive Date: 20070405
  Receipt Date: 20070327
  Transmission Date: 20071010
  Serious: Yes (Hospitalization, Other)
  Sender: FDA-Public Use
  Company Number: FR-PFIZER INC-2007017897

PATIENT
  Sex: Male

DRUGS (9)
  1. LYRICA [Suspect]
     Indication: NEURALGIA
     Route: 048
  2. NEURONTIN [Interacting]
     Indication: NEURALGIA
     Route: 048
  3. SERETIDE [Concomitant]
  4. SOLUPRED [Concomitant]
  5. TRIATEC [Concomitant]
  6. OMEPRAZOLE [Concomitant]
  7. PROZAC [Concomitant]
  8. SERESTA [Concomitant]
  9. SKENAN [Concomitant]

REACTIONS (4)
  - CONVULSION [None]
  - DRUG INTERACTION [None]
  - LOSS OF CONSCIOUSNESS [None]
  - MALAISE [None]
